FAERS Safety Report 15152717 (Version 2)
Quarter: 2019Q2

REPORT INFORMATION
  Report Type: Report from Study
  Country: JP (occurrence: JP)
  Receive Date: 20180717
  Receipt Date: 20190521
  Transmission Date: 20190711
  Serious: Yes (Death, Hospitalization, Other)
  Sender: FDA-Public Use
  Company Number: JP-ROCHE-2154221

PATIENT
  Age: 52 Year
  Sex: Male

DRUGS (10)
  1. TACROLIMUS. [Concomitant]
     Active Substance: TACROLIMUS
  2. CICLOSPORIN [Concomitant]
     Active Substance: CYCLOSPORINE
     Indication: TRANSPLANT REJECTION
     Route: 065
     Dates: start: 20130814
  3. POLARAMINE [Concomitant]
     Active Substance: DEXCHLORPHENIRAMINE MALEATE
     Route: 048
     Dates: start: 20130907, end: 20130907
  4. IVIGLOB EX [Concomitant]
     Active Substance: HUMAN IMMUNOGLOBULIN G
     Route: 042
     Dates: start: 20130802
  5. SIMULECT [Concomitant]
     Active Substance: BASILIXIMAB
     Route: 042
     Dates: start: 20130805, end: 20130805
  6. THYMOGLOBULINE [Concomitant]
     Active Substance: LAPINE T-LYMPHOCYTE IMMUNE GLOBULIN
     Route: 042
     Dates: start: 20130826
  7. MMF [Concomitant]
     Active Substance: MYCOPHENOLATE MOFETIL
  8. POLARAMINE [Concomitant]
     Active Substance: DEXCHLORPHENIRAMINE MALEATE
     Indication: PREMEDICATION
     Route: 048
     Dates: start: 20130830, end: 20130830
  9. RITUXAN [Suspect]
     Active Substance: RITUXIMAB
     Indication: TRANSPLANT REJECTION
     Route: 041
     Dates: start: 20130819, end: 20130819
  10. RITUXAN [Suspect]
     Active Substance: RITUXIMAB
     Route: 041
     Dates: start: 20130827, end: 20130827

REACTIONS (6)
  - Pneumonia pseudomonal [Recovering/Resolving]
  - White blood cell count decreased [Recovering/Resolving]
  - Lung disorder [Fatal]
  - Intentional product use issue [Unknown]
  - Pneumonia [Recovering/Resolving]
  - Off label use [Unknown]

NARRATIVE: CASE EVENT DATE: 20130828
